FAERS Safety Report 10241621 (Version 1)
Quarter: 2014Q2

REPORT INFORMATION
  Report Type: Spontaneous
  Country: IN (occurrence: IN)
  Receive Date: 20140617
  Receipt Date: 20140617
  Transmission Date: 20141212
  Serious: Yes (Other)
  Sender: FDA-Public Use
  Company Number: IN-PFIZER INC-2014161362

PATIENT
  Age: 3 Month
  Sex: Male

DRUGS (2)
  1. PHENYTOIN [Suspect]
     Indication: GENERALISED TONIC-CLONIC SEIZURE
     Dosage: TWO HALF LOADING DOSES
  2. DIAZEPAM [Concomitant]
     Indication: GENERALISED TONIC-CLONIC SEIZURE
     Dosage: UNK

REACTIONS (9)
  - Toxicity to various agents [Recovered/Resolved]
  - Anticonvulsant drug level above therapeutic [Recovered/Resolved]
  - Convulsion [Recovered/Resolved]
  - Extrapyramidal disorder [Recovered/Resolved]
  - Nystagmus [Recovered/Resolved]
  - Visual impairment [Recovered/Resolved]
  - Pupillary reflex impaired [Recovered/Resolved]
  - Eye movement disorder [Recovered/Resolved]
  - Vision blurred [Recovered/Resolved]
